FAERS Safety Report 6802250-3 (Version None)
Quarter: 2010Q2

REPORT INFORMATION
  Report Type: 
  Country: None (occurrence: None)
  Receive Date: 20100628
  Receipt Date: 20100618
  Transmission Date: 20101027
  Serious: Yes (Hospitalization)
  Sender: FDA-Public Use
  Company Number: US-BIOGENIDEC-2010BI020920

PATIENT
  Age: 56 Year
  Sex: Female
  Weight: 63 kg

DRUGS (1)
  1. TYSABRI [Suspect]
     Indication: MULTIPLE SCLEROSIS
     Route: 042
     Dates: start: 20080410

REACTIONS (6)
  - DEPRESSION [None]
  - DIVERTICULITIS [None]
  - HERNIA [None]
  - HYPERCHOLESTEROLAEMIA [None]
  - RHEUMATIC FEVER [None]
  - SLEEP APNOEA SYNDROME [None]
